FAERS Safety Report 21752471 (Version 1)
Quarter: 2022Q4

REPORT INFORMATION
  Report Type: Other
  Country: AT (occurrence: None)
  Receive Date: 20221220
  Receipt Date: 20221220
  Transmission Date: 20230112
  Serious: Yes (Other)
  Sender: FDA-Public Use
  Company Number: AT-ROCHE-3241791

PATIENT
  Sex: Female

DRUGS (15)
  1. TRASTUZUMAB [Suspect]
     Active Substance: TRASTUZUMAB
     Indication: HER2 positive breast cancer
     Route: 065
  2. TRASTUZUMAB [Suspect]
     Active Substance: TRASTUZUMAB
     Route: 065
     Dates: start: 201909, end: 202003
  3. TRASTUZUMAB [Suspect]
     Active Substance: TRASTUZUMAB
     Route: 065
     Dates: start: 202003
  4. TRASTUZUMAB [Suspect]
     Active Substance: TRASTUZUMAB
     Route: 065
     Dates: start: 202109
  5. ADO-TRASTUZUMAB EMTANSINE [Suspect]
     Active Substance: ADO-TRASTUZUMAB EMTANSINE
     Indication: HER2 positive breast cancer
     Route: 065
     Dates: start: 201711, end: 201909
  6. PACLITAXEL [Suspect]
     Active Substance: PACLITAXEL
     Indication: HER2 positive breast cancer
     Route: 065
     Dates: start: 202003, end: 202109
  7. FLUOROURACIL [Concomitant]
     Active Substance: FLUOROURACIL
  8. EPIRUBICIN [Concomitant]
     Active Substance: EPIRUBICIN
  9. CYCLOPHOSPHAMIDE [Concomitant]
     Active Substance: CYCLOPHOSPHAMIDE
  10. DOCETAXEL [Concomitant]
     Active Substance: DOCETAXEL
  11. ANASTROZOLE [Concomitant]
     Active Substance: ANASTROZOLE
  12. DENOSUMAB [Concomitant]
     Active Substance: DENOSUMAB
  13. VINORELBINE [Concomitant]
     Active Substance: VINORELBINE TARTRATE
  14. CISPLATIN [Concomitant]
     Active Substance: CISPLATIN
  15. CAPECITABINE [Concomitant]
     Active Substance: CAPECITABINE

REACTIONS (3)
  - Cardiotoxicity [Unknown]
  - Disease progression [Unknown]
  - Metastases to central nervous system [Unknown]

NARRATIVE: CASE EVENT DATE: 20201201
